FAERS Safety Report 18330334 (Version 1)
Quarter: 2020Q3

REPORT INFORMATION
  Report Type: Spontaneous
  Country: FR (occurrence: FR)
  Receive Date: 20200930
  Receipt Date: 20200930
  Transmission Date: 20201103
  Serious: Yes (Other)
  Sender: FDA-Public Use
  Company Number: FR-AMGEN-FRASP2020155260

PATIENT
  Age: 69 Year
  Sex: Female

DRUGS (2)
  1. XGEVA [Suspect]
     Active Substance: DENOSUMAB
     Indication: BREAST CANCER METASTATIC
     Dosage: 1 DOSAGE FORM, QMO
     Route: 042
     Dates: start: 201407, end: 201607
  2. IBRANCE [Suspect]
     Active Substance: PALBOCICLIB
     Indication: BREAST CANCER METASTATIC
     Dosage: 75 MILLIGRAM, QD
     Route: 048

REACTIONS (1)
  - Osteoradionecrosis [Not Recovered/Not Resolved]

NARRATIVE: CASE EVENT DATE: 201607
